FAERS Safety Report 8352257-2 (Version None)
Quarter: 2012Q2

REPORT INFORMATION
  Report Type: 
  Country: None (occurrence: None)
  Receive Date: 20120511
  Receipt Date: 20120501
  Transmission Date: 20120825
  Serious: Yes (Other)
  Sender: FDA-Public Use
  Company Number: GB-JNJFOC-20120502842

PATIENT
  Sex: Female

DRUGS (4)
  1. STELARA [Suspect]
     Indication: PRODUCT USED FOR UNKNOWN INDICATION
     Route: 058
  2. STELARA [Suspect]
     Route: 058
  3. STELARA [Suspect]
     Route: 058
  4. STELARA [Suspect]
     Route: 058
     Dates: start: 20110101

REACTIONS (1)
  - MULTIPLE SCLEROSIS [None]
